FAERS Safety Report 16938819 (Version 1)
Quarter: 2019Q4

REPORT INFORMATION
  Report Type: Spontaneous
  Country: US (occurrence: US)
  Receive Date: 20190828
  Receipt Date: 20190828
  Transmission Date: 20200122
  Serious: Yes (Hospitalization)
  Sender: FDA-Public Use
  Company Number: None

PATIENT
  Age: 76 Year
  Sex: Male
  Weight: 88.9 kg

DRUGS (1)
  1. ZOLEDRONIC ACID 5MG [Suspect]
     Active Substance: ZOLEDRONIC ACID
     Indication: OSTEOPOROSIS
     Route: 042
     Dates: start: 20190702

REACTIONS (2)
  - Dialysis [None]
  - Renal failure [None]

NARRATIVE: CASE EVENT DATE: 20190712
